FAERS Safety Report 9785716 (Version 1)
Quarter: 2013Q4

REPORT INFORMATION
  Report Type: Report from Study
  Country: CA (occurrence: CA)
  Receive Date: 20131227
  Receipt Date: 20131227
  Transmission Date: 20140711
  Serious: Yes (Hospitalization)
  Sender: FDA-Public Use
  Company Number: CA-JNJFOC-20131214502

PATIENT
  Age: 20 Year
  Sex: Female
  Weight: 46 kg

DRUGS (3)
  1. REMICADE [Suspect]
     Indication: COLITIS ULCERATIVE
     Route: 042
     Dates: start: 20131127, end: 20131216
  2. IMURAN [Concomitant]
     Route: 048
  3. PREDNISONE [Concomitant]
     Route: 048

REACTIONS (1)
  - Intestinal resection [Unknown]
